FAERS Safety Report 5430382-3 (Version None)
Quarter: 2007Q3

REPORT INFORMATION
  Report Type: 
  Country: None (occurrence: None)
  Receive Date: 20070830
  Receipt Date: 20070820
  Transmission Date: 20080115
  Serious: Yes (Other)
  Sender: FDA-Public Use
  Company Number: FR-JNJFOC-20070803769

PATIENT
  Age: 49 Year
  Sex: Male

DRUGS (4)
  1. OFLOCET [Suspect]
     Indication: OTITIS EXTERNA
     Route: 001
  2. PRISTINAMYCIN [Suspect]
     Indication: OTITIS EXTERNA BACTERIAL
     Route: 048
  3. AURICULARUM [Concomitant]
     Indication: OTITIS EXTERNA BACTERIAL
     Route: 001
  4. AURICULARUM [Concomitant]
     Indication: OTITIS EXTERNA FUNGAL
     Route: 001

REACTIONS (4)
  - ACUTE GENERALISED EXANTHEMATOUS PUSTULOSIS [None]
  - BURNING SENSATION [None]
  - FACE OEDEMA [None]
  - PYREXIA [None]
